FAERS Safety Report 5376736-5 (Version None)
Quarter: 2007Q3

REPORT INFORMATION
  Report Type: 
  Country: None (occurrence: None)
  Receive Date: 20070703
  Receipt Date: 20070622
  Transmission Date: 20080115
  Serious: Yes (Other)
  Sender: FDA-Public Use
  Company Number: HQWYE773825JUN07

PATIENT
  Sex: Male
  Weight: 42 kg

DRUGS (10)
  1. MYLOTARG [Suspect]
     Indication: ACUTE MYELOID LEUKAEMIA
     Route: 041
     Dates: start: 20070530, end: 20070530
  2. FUNGUARD [Concomitant]
     Route: 041
     Dates: start: 20070525, end: 20070614
  3. CIPROFLOXACIN [Concomitant]
     Route: 048
     Dates: start: 20070529, end: 20070614
  4. DIOVAN [Concomitant]
     Route: 048
     Dates: start: 20070601, end: 20070614
  5. MARZULENE S [Concomitant]
     Indication: PROPHYLAXIS
     Route: 048
     Dates: start: 20070508, end: 20070602
  6. HARNAL [Concomitant]
     Indication: BENIGN PROSTATIC HYPERPLASIA
     Route: 048
     Dates: start: 20070508, end: 20070602
  7. CERNILTON [Concomitant]
     Indication: BENIGN PROSTATIC HYPERPLASIA
     Dosage: 6 DOSE FORM/DAY
     Route: 048
     Dates: start: 20070508, end: 20070602
  8. URSO 250 [Concomitant]
     Route: 048
     Dates: start: 20070525, end: 20070602
  9. MEROPENEM [Concomitant]
     Route: 041
     Dates: start: 20070509, end: 20070614
  10. GASTER [Concomitant]
     Route: 048
     Dates: start: 20070508, end: 20070602

REACTIONS (1)
  - CONFUSIONAL STATE [None]
